FAERS Safety Report 23032105 (Version 13)
Quarter: 2025Q1

REPORT INFORMATION
  Report Type: Spontaneous
  Country: US (occurrence: US)
  Receive Date: 20231005
  Receipt Date: 20250327
  Transmission Date: 20250408
  Serious: No
  Sender: BIOGEN
  Company Number: US-BIOGEN-2023BI01195475

PATIENT
  Age: 64 Year
  Sex: Female

DRUGS (24)
  1. VUMERITY [Suspect]
     Active Substance: DIROXIMEL FUMARATE
     Indication: Multiple sclerosis
     Dosage: TAKE 1 CAPSULE (231MG) BY MOUTH TWICE DAILY FOR THE FIRST 7 DAYS, THEN TAKE 2 CAPSULES (462MG) TW...
     Route: 050
     Dates: start: 202303
  2. VUMERITY [Suspect]
     Active Substance: DIROXIMEL FUMARATE
     Dosage: TAKE 2 CAPSULES (462MG) TWICE DAILY THEREAFTER?MAINTENANCE DOSE
     Route: 050
     Dates: start: 20230309
  3. GABAPENTIN [Suspect]
     Active Substance: GABAPENTIN
     Indication: Product used for unknown indication
     Route: 050
  4. EPIPEN [Concomitant]
     Active Substance: EPINEPHRINE
     Route: 050
  5. ALBUTEROL [Concomitant]
     Active Substance: ALBUTEROL
     Route: 050
  6. DULOXETINE HYDROCHLORIDE [Concomitant]
     Active Substance: DULOXETINE HYDROCHLORIDE
     Route: 050
  7. PHENYTOIN SODIUM [Concomitant]
     Active Substance: PHENYTOIN SODIUM
     Route: 050
  8. LOSARTAN POTASSIUM [Concomitant]
     Active Substance: LOSARTAN POTASSIUM
     Route: 050
  9. CBD KINGS THC FREE [Concomitant]
     Route: 050
  10. HYDROCHLOROTHIAZIDE [Concomitant]
     Active Substance: HYDROCHLOROTHIAZIDE
     Route: 050
  11. TIZANIDINE HYDROCHLORIDE [Concomitant]
     Active Substance: TIZANIDINE HYDROCHLORIDE
     Route: 050
  12. TYLENOL [Concomitant]
     Active Substance: ACETAMINOPHEN
     Route: 050
  13. COENZYME Q10 [Concomitant]
     Active Substance: DIETARY SUPPLEMENT\UBIDECARENONE
     Route: 050
  14. ACETAMINOPHEN\HYDROCODONE [Concomitant]
     Active Substance: ACETAMINOPHEN\HYDROCODONE
     Route: 050
  15. ATORVASTATIN CALCIUM [Concomitant]
     Active Substance: ATORVASTATIN CALCIUM
     Route: 050
  16. ASPIRIN [Concomitant]
     Active Substance: ASPIRIN
     Route: 050
  17. TUMS ULTRA 1000 [Concomitant]
     Indication: Product used for unknown indication
     Route: 050
  18. VITAMIN B12 [Concomitant]
     Active Substance: CYANOCOBALAMIN
     Indication: Product used for unknown indication
     Route: 050
  19. VITAMIN D3 [Concomitant]
     Active Substance: CHOLECALCIFEROL
     Indication: Product used for unknown indication
     Route: 050
  20. ZYRTEC [Concomitant]
     Active Substance: CETIRIZINE HYDROCHLORIDE
     Indication: Product used for unknown indication
     Route: 050
  21. MONTELUKAST SODIUM [Concomitant]
     Active Substance: MONTELUKAST SODIUM
     Indication: Product used for unknown indication
     Route: 050
  22. TOPIRAMATE [Concomitant]
     Active Substance: TOPIRAMATE
     Indication: Product used for unknown indication
     Route: 050
  23. ROPINIROLE HYDROCHLORIDE [Concomitant]
     Active Substance: ROPINIROLE HYDROCHLORIDE
     Indication: Product used for unknown indication
     Route: 050
  24. ROSUVASTATIN CALCIUM [Concomitant]
     Active Substance: ROSUVASTATIN CALCIUM
     Indication: Product used for unknown indication
     Route: 050

REACTIONS (21)
  - Constipation [Not Recovered/Not Resolved]
  - Fatigue [Not Recovered/Not Resolved]
  - Hypertonic bladder [Not Recovered/Not Resolved]
  - Visual acuity reduced [Not Recovered/Not Resolved]
  - Dizziness [Not Recovered/Not Resolved]
  - Oral disorder [Not Recovered/Not Resolved]
  - Trigeminal neuralgia [Unknown]
  - Dysphagia [Unknown]
  - Abdominal distension [Unknown]
  - Hyperhidrosis [Unknown]
  - Throat irritation [Unknown]
  - Skin irritation [Unknown]
  - Dyskinesia [Unknown]
  - Multiple sclerosis [Unknown]
  - Chest discomfort [Recovered/Resolved]
  - Fall [Recovered/Resolved]
  - Hot flush [Not Recovered/Not Resolved]
  - Feeling hot [Recovered/Resolved]
  - Flushing [Recovered/Resolved]
  - Dyspepsia [Recovered/Resolved]
  - Pruritus [Recovered/Resolved]

NARRATIVE: CASE EVENT DATE: 20230301
